FAERS Safety Report 9156930 (Version 1)
Quarter: 2013Q1

REPORT INFORMATION
  Report Type: Spontaneous
  Country: US (occurrence: None)
  Receive Date: 20130308
  Receipt Date: 20130308
  Transmission Date: 20140127
  Serious: Yes (Hospitalization)
  Sender: FDA-Public Use
  Company Number: None

PATIENT
  Sex: Female
  Weight: 49.3 kg

DRUGS (2)
  1. RITUXIMAB (MOAB C2B8 ANTI CD20, CHIMERIC) [Suspect]
  2. TACROLIMUS [Suspect]

REACTIONS (5)
  - Cerebellar atrophy [None]
  - Vertigo [None]
  - Nausea [None]
  - Vomiting [None]
  - Dizziness [None]
